FAERS Safety Report 24332047 (Version 1)
Quarter: 2024Q3

REPORT INFORMATION
  Report Type: Report from Study
  Country: US (occurrence: None)
  Receive Date: 20240918
  Receipt Date: 20240918
  Transmission Date: 20241017
  Serious: Yes (Other)
  Sender: ASTRAZENECA
  Company Number: 2024A205212

PATIENT
  Sex: Female

DRUGS (1)
  1. TAGRISSO [Suspect]
     Active Substance: OSIMERTINIB
     Route: 048

REACTIONS (15)
  - Aphasia [Unknown]
  - Memory impairment [Unknown]
  - Disturbance in attention [Unknown]
  - Bradyphrenia [Unknown]
  - Muscle spasms [Unknown]
  - Middle insomnia [Unknown]
  - White blood cell count decreased [Unknown]
  - Skin discolouration [Unknown]
  - Dry skin [Unknown]
  - Diarrhoea [Unknown]
  - Drug hypersensitivity [Unknown]
  - Vision blurred [Not Recovered/Not Resolved]
  - Disturbance in attention [Unknown]
  - Blood cholesterol increased [Recovered/Resolved]
  - Fatigue [Unknown]
